FAERS Safety Report 20084907 (Version 2)
Quarter: 2021Q4

REPORT INFORMATION
  Report Type: Report from Study
  Country: AR (occurrence: AR)
  Receive Date: 20211118
  Receipt Date: 20211201
  Transmission Date: 20220303
  Serious: Yes (Other)
  Sender: FDA-Public Use
  Company Number: AR-NOVARTISPH-NVSC2021AR262440

PATIENT
  Sex: Male
  Weight: 62 kg

DRUGS (3)
  1. OMNITROPE [Suspect]
     Active Substance: SOMATROPIN
     Indication: Growth hormone deficiency
     Dosage: 2 MG, QD
     Route: 058
     Dates: start: 20140606
  2. OMNITROPE [Suspect]
     Active Substance: SOMATROPIN
     Indication: Dwarfism
     Dosage: 10 MG (WITH FORMULATION: CARTRIDGE)
     Route: 065
  3. OMNITROPE [Suspect]
     Active Substance: SOMATROPIN
     Dosage: 6 IU (APPLICATION DAYS: 30)
     Route: 065

REACTIONS (1)
  - Diabetes insipidus [Unknown]
